FAERS Safety Report 18042474 (Version 1)
Quarter: 2020Q3

REPORT INFORMATION
  Report Type: Spontaneous
  Country: US (occurrence: US)
  Receive Date: 20200716
  Receipt Date: 20200716
  Transmission Date: 20201103
  Serious: No
  Sender: FDA-Public Use
  Company Number: None

PATIENT
  Age: 72 Year
  Sex: Male

DRUGS (1)
  1. CARVEDILOL (CARVEDILOL 3.125MG TAB) [Suspect]
     Active Substance: CARVEDILOL
     Indication: HYPERTENSION
     Route: 048
     Dates: start: 20180627, end: 20180706

REACTIONS (2)
  - Urinary incontinence [None]
  - Polyuria [None]

NARRATIVE: CASE EVENT DATE: 20180705
